FAERS Safety Report 14315190 (Version 1)
Quarter: 2017Q4

REPORT INFORMATION
  Report Type: Spontaneous
  Country: NL (occurrence: NL)
  Receive Date: 20171221
  Receipt Date: 20171221
  Transmission Date: 20180321
  Serious: Yes (Hospitalization)
  Sender: FDA-Public Use
  Company Number: NL-PFIZER INC-2017539477

PATIENT
  Age: 40 Year
  Sex: Male
  Weight: 104 kg

DRUGS (6)
  1. GABAPENTIN. [Suspect]
     Active Substance: GABAPENTIN
     Indication: NEUROPATHY PERIPHERAL
     Dosage: 200 MG, 3X/DAY
     Route: 050
     Dates: start: 20160101
  2. PROPRANOL HCL [Concomitant]
     Dosage: 40 MG, 3X/DAY
     Route: 048
  3. METHYLFENIDAAT HCL [Concomitant]
     Dosage: 10 MG, 3X/DAY
     Route: 050
  4. OXYCODONE HYDROCHLORIDE. [Interacting]
     Active Substance: OXYCODONE HYDROCHLORIDE
     Indication: PROCEDURAL PAIN
     Dosage: 10 MG, AS NEEDED IF NECESSARY RETARD 10 MG 2 X DAILY
     Route: 050
     Dates: start: 20171008, end: 20171107
  5. DULOXETINE /01749302/ [Concomitant]
     Active Substance: DULOXETINE
     Dosage: 2 DF, UNK
     Route: 050
  6. OXYCODON [Interacting]
     Active Substance: OXYCODONE
     Indication: PROCEDURAL PAIN
     Dosage: 5 MG, AS NEEDED IF NECESSARY 4 X DAILY
     Route: 050

REACTIONS (6)
  - Muscle spasms [Recovering/Resolving]
  - Confusional state [Recovering/Resolving]
  - Drug interaction [Unknown]
  - Visual impairment [Recovering/Resolving]
  - Trismus [Recovering/Resolving]
  - Speech disorder [Recovering/Resolving]

NARRATIVE: CASE EVENT DATE: 20171106
